FAERS Safety Report 22143297 (Version 1)
Quarter: 2023Q1

REPORT INFORMATION
  Report Type: Report from Study
  Country: IT (occurrence: IT)
  Receive Date: 20230327
  Receipt Date: 20230327
  Transmission Date: 20230417
  Serious: Yes (Hospitalization)
  Sender: FDA-Public Use
  Company Number: IT-ABBVIE-4705453

PATIENT
  Age: 74 Year
  Sex: Female

DRUGS (2)
  1. CARBIDOPA\LEVODOPA [Suspect]
     Active Substance: CARBIDOPA\LEVODOPA
     Indication: Parkinson^s disease
     Dosage: TOTAL DAILY DOSE (MG): 1130; PUMP SETTING: MD: 8+3; CR: 2,5 (17H); ED: 3/ EVENT ONSET FOR NEUROLY...
     Route: 050
     Dates: start: 20211115
  2. CARBIDOPA\LEVODOPA [Suspect]
     Active Substance: CARBIDOPA\LEVODOPA

REACTIONS (2)
  - Neurolysis [Recovered/Resolved]
  - Neurolysis [Recovered/Resolved]

NARRATIVE: CASE EVENT DATE: 20221219
